FAERS Safety Report 11943622 (Version 1)
Quarter: 2016Q1

REPORT INFORMATION
  Report Type: Spontaneous
  Country: US (occurrence: US)
  Receive Date: 20160125
  Receipt Date: 20160125
  Transmission Date: 20160526
  Serious: No
  Sender: FDA-Public Use
  Company Number: US-UNITED THERAPEUTICS-UNT-2015-013328

PATIENT
  Sex: Female

DRUGS (2)
  1. REMODULIN [Suspect]
     Active Substance: TREPROSTINIL
     Dosage: 0.07 ?G/KG, UNK
     Route: 041
     Dates: start: 20120718
  2. REMODULIN [Suspect]
     Active Substance: TREPROSTINIL
     Indication: PULMONARY ARTERIAL HYPERTENSION
     Dosage: 0.070 ?G/KG/MIN, EVERY 48 HOURS
     Route: 041
     Dates: start: 2011

REACTIONS (3)
  - Device breakage [Unknown]
  - Pain in extremity [Recovering/Resolving]
  - Catheter site haemorrhage [Unknown]

NARRATIVE: CASE EVENT DATE: 201510
